FAERS Safety Report 9536249 (Version 1)
Quarter: 2013Q2

REPORT INFORMATION
  Report Type: Spontaneous
  Country: US (occurrence: None)
  Receive Date: 20130507
  Receipt Date: 20130507
  Transmission Date: 20140414
  Serious: No
  Sender: FDA-Public Use
  Company Number: PHEH2013US004215

PATIENT
  Sex: Male

DRUGS (1)
  1. AFINITOR (RAD) [Suspect]
     Route: 048

REACTIONS (1)
  - Renal failure [None]
